FAERS Safety Report 9978211 (Version 2)
Quarter: 2014Q1

REPORT INFORMATION
  Report Type: Spontaneous
  Country: US (occurrence: US)
  Receive Date: 20140306
  Receipt Date: 20140306
  Transmission Date: 20141002
  Serious: Yes (Disabling)
  Sender: FDA-Public Use
  Company Number: US-GE HEALTHCARE MEDICAL DIAGNOSTICS-OSCN-PR-0805S-0280

PATIENT
  Age: 35 Year
  Sex: Male

DRUGS (3)
  1. OMNISCAN [Suspect]
     Indication: MASS
     Route: 042
     Dates: start: 20040622, end: 20040622
  2. OMNISCAN [Suspect]
     Indication: VASCULAR TEST
     Route: 042
     Dates: start: 20050322, end: 20050322
  3. MAGNEVIST [Concomitant]
     Indication: DIALYSIS DEVICE INSERTION
     Route: 042
     Dates: start: 20040902, end: 20040902

REACTIONS (1)
  - Nephrogenic systemic fibrosis [Not Recovered/Not Resolved]
